FAERS Safety Report 17824121 (Version 1)
Quarter: 2020Q2

REPORT INFORMATION
  Report Type: Spontaneous
  Country: DE (occurrence: DE)
  Receive Date: 20200526
  Receipt Date: 20200526
  Transmission Date: 20200714
  Serious: Yes (Other)
  Sender: FDA-Public Use
  Company Number: DE-ALLERGAN-2020168US

PATIENT
  Sex: Female

DRUGS (1)
  1. LEVONORGESTREL - BP [Suspect]
     Active Substance: LEVONORGESTREL
     Indication: CONTRACEPTION
     Dosage: 52MG, AT AN INITIAL RELEASE RATE OF 20 MICROGRAMS/24 HOURS.
     Route: 015

REACTIONS (3)
  - Drug ineffective [Unknown]
  - Pregnancy [Unknown]
  - Device expulsion [Recovered/Resolved]
